FAERS Safety Report 15689598 (Version 1)
Quarter: 2018Q4

REPORT INFORMATION
  Report Type: Spontaneous
  Country: NL (occurrence: NL)
  Receive Date: 20181205
  Receipt Date: 20181205
  Transmission Date: 20190205
  Serious: Yes (Other)
  Sender: FDA-Public Use
  Company Number: NL-TEVA-2018-NL-981417

PATIENT
  Age: 63 Year
  Sex: Male

DRUGS (8)
  1. ATORVASTATINE 20MG [Concomitant]
     Dosage: 20 MILLIGRAM DAILY; 1DD1
     Dates: start: 20171222
  2. PERINDOPRIL 2MG [Concomitant]
     Active Substance: PERINDOPRIL
     Dosage: 2 MILLIGRAM DAILY; 1DD1
     Dates: start: 20171222
  3. TAMSULOSINE MET SOLFENACINE [Concomitant]
     Dosage: 1 DOSAGE FORMS DAILY; 1DD1
     Dates: start: 20171020
  4. CARBASALAATCALCIUM 100MG [Concomitant]
     Dosage: 100 MILLIGRAM DAILY; 1DD1
     Dates: start: 20171222
  5. TICAGRELOR 90MG [Concomitant]
     Active Substance: TICAGRELOR
     Dosage: 90 MILLIGRAM DAILY; 1DD1
     Dates: start: 20171222
  6. BISOPROLOL 2,5MG [Concomitant]
     Dosage: 2DD1
     Dates: start: 20171222
  7. PANTOPRAZOL MAAGSAPRESISTENTE TABLET, 40 MG (MILLIGRAM) [Suspect]
     Active Substance: PANTOPRAZOLE SODIUM
     Indication: GASTROOESOPHAGEAL REFLUX DISEASE
     Dosage: 40 MILLIGRAM DAILY; 1X PER DAG 1 TABLET
     Route: 065
     Dates: start: 20140819, end: 20181016
  8. VASELINECETOMACROGOLCREME [Concomitant]
     Dosage: GEBRUIK NA BEHOEFTE
     Dates: start: 20110411

REACTIONS (2)
  - Inappropriate antidiuretic hormone secretion [Recovering/Resolving]
  - Hyponatraemia [Recovering/Resolving]

NARRATIVE: CASE EVENT DATE: 20181016
